FAERS Safety Report 10732146 (Version 1)
Quarter: 2015Q1

REPORT INFORMATION
  Report Type: Report from Study
  Country: HN (occurrence: HN)
  Receive Date: 20150123
  Receipt Date: 20150123
  Transmission Date: 20150721
  Serious: Yes (Disabling)
  Sender: FDA-Public Use
  Company Number: HN-BAYER-2015-007441

PATIENT
  Age: 44 Year
  Sex: Male
  Weight: 185 kg

DRUGS (1)
  1. BETAFERON [Suspect]
     Active Substance: INTERFERON BETA-1B

REACTIONS (3)
  - Gait disturbance [None]
  - Skin exfoliation [None]
  - Muscular weakness [None]

NARRATIVE: CASE EVENT DATE: 20150106
